FAERS Safety Report 7269978-5 (Version None)
Quarter: 2011Q1

REPORT INFORMATION
  Report Type: 
  Country: None (occurrence: None)
  Receive Date: 20110202
  Receipt Date: 20110124
  Transmission Date: 20110831
  Serious: Yes (Hospitalization, Other)
  Sender: FDA-Public Use
  Company Number: US-ROCHE-746681

PATIENT
  Age: 17 Year
  Sex: Female
  Weight: 80 kg

DRUGS (9)
  1. BENADRYL [Concomitant]
  2. TYLENOL-500 [Concomitant]
  3. ANAKINRA [Concomitant]
     Route: 058
  4. TOCILIZUMAB [Suspect]
     Dosage: RATE REDUCED TO 50%; AT HALF THE SUGGESTED RATE.
     Route: 065
     Dates: start: 20101130, end: 20101130
  5. TOCILIZUMAB [Suspect]
     Dosage: RATE REDUCED TO 1/10TH; FORM: INFUSION
     Route: 065
     Dates: start: 20101005, end: 20101005
  6. TOCILIZUMAB [Suspect]
     Route: 065
     Dates: start: 20101102, end: 20101102
  7. METHOTREXATE [Concomitant]
     Route: 048
  8. PREDNISONE [Concomitant]
  9. FOLIC ACID [Concomitant]

REACTIONS (8)
  - DYSPNOEA [None]
  - NAUSEA [None]
  - ANAPHYLACTIC REACTION [None]
  - VOMITING [None]
  - PHARYNGEAL OEDEMA [None]
  - FLUSHING [None]
  - HEART RATE INCREASED [None]
  - RESPIRATORY RATE INCREASED [None]
